FAERS Safety Report 18556471 (Version 1)
Quarter: 2020Q4

REPORT INFORMATION
  Report Type: Report from Study
  Country: BR (occurrence: BR)
  Receive Date: 20201128
  Receipt Date: 20201128
  Transmission Date: 20210114
  Serious: Yes (Disabling, Other)
  Sender: FDA-Public Use
  Company Number: NVSC2020BR314364

PATIENT
  Sex: Female

DRUGS (1)
  1. COSENTYX [Suspect]
     Active Substance: SECUKINUMAB
     Indication: ANKYLOSING SPONDYLITIS
     Dosage: 300 MG, UNKNOWN
     Route: 065
     Dates: start: 201911, end: 202008

REACTIONS (11)
  - Gait disturbance [Recovering/Resolving]
  - Joint lock [Recovered/Resolved]
  - Peripheral swelling [Unknown]
  - Amnesia [Unknown]
  - Pain [Unknown]
  - Movement disorder [Unknown]
  - Back pain [Recovering/Resolving]
  - Finger deformity [Recovering/Resolving]
  - Joint swelling [Recovering/Resolving]
  - Mobility decreased [Recovering/Resolving]
  - Drug ineffective [Unknown]
